FAERS Safety Report 12457535 (Version 1)
Quarter: 2016Q2

REPORT INFORMATION
  Report Type: Report from Study
  Country: BR (occurrence: BR)
  Receive Date: 20160610
  Receipt Date: 20160610
  Transmission Date: 20160815
  Serious: Yes (Other)
  Sender: FDA-Public Use
  Company Number: ALCN2016BR003378

PATIENT
  Age: 0 Day
  Sex: Male

DRUGS (1)
  1. AZORGA [Suspect]
     Active Substance: BRINZOLAMIDE\TIMOLOL MALEATE
     Indication: DEVELOPMENTAL GLAUCOMA
     Dosage: UNK
     Route: 047
     Dates: start: 20110530

REACTIONS (2)
  - Drug administered to patient of inappropriate age [Not Recovered/Not Resolved]
  - Glaucoma [Unknown]

NARRATIVE: CASE EVENT DATE: 20110530
